FAERS Safety Report 8481676-9 (Version None)
Quarter: 2012Q3

REPORT INFORMATION
  Report Type: 
  Country: None (occurrence: None)
  Receive Date: 20120702
  Receipt Date: 20120621
  Transmission Date: 20120928
  Serious: Yes (Hospitalization)
  Sender: FDA-Public Use
  Company Number: CA-ASTRAZENECA-2012SE42443

PATIENT
  Age: 87 Year
  Sex: Male

DRUGS (8)
  1. SENOKOT [Concomitant]
  2. DOCUSATE [Concomitant]
  3. CEFTRIAXONE [Suspect]
     Route: 065
     Dates: start: 20120601
  4. PIPERACILLIN AND TAZOBACTAM [Suspect]
     Route: 042
     Dates: start: 20120601
  5. ZITHROMAX [Suspect]
     Route: 048
     Dates: start: 20120601
  6. ACETAMINOPHEN [Concomitant]
  7. CASODEX [Suspect]
     Route: 048
     Dates: start: 20120501
  8. ASPIRIN [Concomitant]

REACTIONS (2)
  - ORGANISING PNEUMONIA [None]
  - DRUG INEFFECTIVE [None]
